FAERS Safety Report 6314429-8 (Version None)
Quarter: 2009Q3

REPORT INFORMATION
  Report Type: 
  Country: None (occurrence: None)
  Receive Date: 20090819
  Receipt Date: 20090811
  Transmission Date: 20100115
  Serious: Yes (Death, Hospitalization)
  Sender: FDA-Public Use
  Company Number: US-ROCHE-649906

PATIENT
  Age: 72 Year
  Sex: Female
  Weight: 87.1 kg

DRUGS (4)
  1. CAPECITABINE [Suspect]
     Indication: BREAST CANCER
     Route: 048
     Dates: start: 20090702, end: 20090715
  2. CHLORTHALIDONE [Concomitant]
     Indication: HYPERTENSION
     Dates: start: 19850101
  3. METFORMIN HYDROCHLORIDE [Concomitant]
     Dates: start: 20090701
  4. GLICLAZIDE [Concomitant]
     Dates: start: 20090512

REACTIONS (10)
  - ANAEMIA [None]
  - DEATH [None]
  - DEHYDRATION [None]
  - DIARRHOEA [None]
  - GASTROINTESTINAL TOXICITY [None]
  - HYPERGLYCAEMIA [None]
  - MUCOSAL INFLAMMATION [None]
  - NAUSEA [None]
  - PLATELET COUNT DECREASED [None]
  - VOMITING [None]
